FAERS Safety Report 18879299 (Version 1)
Quarter: 2021Q1

REPORT INFORMATION
  Report Type: Spontaneous
  Country: DE (occurrence: DE)
  Receive Date: 20210211
  Receipt Date: 20210211
  Transmission Date: 20210420
  Serious: Yes (Other)
  Sender: FDA-Public Use
  Company Number: DE-MYLANLABS-PF-K200900606

PATIENT
  Age: 55 Year
  Sex: Male

DRUGS (2)
  1. EPINEPHRINE. [Suspect]
     Active Substance: EPINEPHRINE
     Indication: ALLERGY TO VENOM
  2. EPINEPHRINE. [Suspect]
     Active Substance: EPINEPHRINE
     Indication: ALLERGY TO ARTHROPOD STING
     Dosage: PRESCRIBED AS INTRAMUSCULAR AUTO?INJECTOR
     Route: 030

REACTIONS (4)
  - Injection site ischaemia [Recovered/Resolved]
  - Accidental exposure to product [Recovered/Resolved]
  - Sensorimotor disorder [Recovered/Resolved]
  - Injury associated with device [Recovered/Resolved]
